FAERS Safety Report 11461698 (Version 1)
Quarter: 2015Q3

REPORT INFORMATION
  Report Type: Spontaneous
  Country: US (occurrence: US)
  Receive Date: 20150831
  Receipt Date: 20150831
  Transmission Date: 20151125
  Serious: No
  Sender: FDA-Public Use
  Company Number: US-ELI_LILLY_AND_COMPANY-US201008004782

PATIENT
  Age: 41 Year
  Sex: Female

DRUGS (3)
  1. ESTRACE [Concomitant]
     Active Substance: ESTRADIOL
  2. CYMBALTA [Suspect]
     Active Substance: DULOXETINE HYDROCHLORIDE
     Indication: DEPRESSION
     Dosage: 30 MG, UNK
     Dates: end: 20100812
  3. SYNTHROID [Concomitant]
     Active Substance: LEVOTHYROXINE SODIUM

REACTIONS (2)
  - Peripheral swelling [Recovering/Resolving]
  - Swelling face [Recovering/Resolving]
